FAERS Safety Report 19134451 (Version 1)
Quarter: 2021Q2

REPORT INFORMATION
  Report Type: Other
  Country: US (occurrence: US)
  Receive Date: 20210414
  Receipt Date: 20210414
  Transmission Date: 20210717
  Serious: Yes (Other)
  Sender: FDA-Public Use
  Company Number: US-INTERCEPT-PM2020001545

PATIENT
  Age: 75 Year
  Sex: Female

DRUGS (1)
  1. OCALIVA [Suspect]
     Active Substance: OBETICHOLIC ACID
     Indication: PRIMARY BILIARY CHOLANGITIS
     Dosage: 5 MILLIGRAM, QW
     Route: 048
     Dates: start: 20180827

REACTIONS (10)
  - Limb injury [Recovering/Resolving]
  - Fatigue [Unknown]
  - Hospice care [Unknown]
  - Therapy interrupted [Unknown]
  - Wound [Unknown]
  - Memory impairment [Unknown]
  - Thinking abnormal [Unknown]
  - Fall [Recovered/Resolved]
  - Haemorrhage [Unknown]
  - Decreased activity [Unknown]

NARRATIVE: CASE EVENT DATE: 202005
